FAERS Safety Report 5671561-X (Version None)
Quarter: 2008Q1

REPORT INFORMATION
  Report Type: 
  Country: None (occurrence: None)
  Receive Date: 20080313
  Receipt Date: 20080207
  Transmission Date: 20080703
  Serious: Yes (Death, Other)
  Sender: FDA-Public Use
  Company Number: 2008EU000489

PATIENT
  Age: 48 Year
  Sex: Male

DRUGS (4)
  1. TACROLIMUS [Suspect]
     Indication: LIVER TRANSPLANT
     Dosage: /D
  2. PREDNISOLONE [Concomitant]
  3. HEPATITIS B IMMUNE GLOBULIN (IMMUNOGLOBULIN ANTIHEPATITIS B) [Concomitant]
  4. LAMIVUDINE [Concomitant]

REACTIONS (12)
  - ASCITES [None]
  - BLOOD BILIRUBIN INCREASED [None]
  - COAGULOPATHY [None]
  - COMA [None]
  - JAUNDICE [None]
  - KAPOSI'S SARCOMA [None]
  - MULTI-ORGAN FAILURE [None]
  - OEDEMA PERIPHERAL [None]
  - PLEURAL EFFUSION [None]
  - TRANSPLANT REJECTION [None]
  - VENOOCCLUSIVE LIVER DISEASE [None]
  - WEIGHT INCREASED [None]
